FAERS Safety Report 8335059-2 (Version None)
Quarter: 2012Q2

REPORT INFORMATION
  Report Type: 
  Country: None (occurrence: None)
  Receive Date: 20120503
  Receipt Date: 20120424
  Transmission Date: 20120825
  Serious: Yes (Hospitalization, Disabling)
  Sender: FDA-Public Use
  Company Number: US-JNJFOC-20110603038

PATIENT
  Sex: Female
  Weight: 46.6 kg

DRUGS (17)
  1. BENTYL [Concomitant]
  2. REMICADE [Suspect]
     Indication: CROHN'S DISEASE
     Route: 042
     Dates: start: 20081203
  3. HUMIRA [Concomitant]
     Indication: CROHN'S DISEASE
     Dates: start: 20110426
  4. PROZAC [Concomitant]
  5. BACTROBAN [Concomitant]
     Route: 061
  6. METHOTREXATE [Concomitant]
  7. PROBIOTICS [Concomitant]
  8. REMICADE [Suspect]
     Route: 042
     Dates: start: 20110209, end: 20110209
  9. HUMIRA [Concomitant]
     Dates: start: 20110511
  10. ASPIRIN [Concomitant]
  11. MESALAMINE [Concomitant]
     Route: 048
  12. CLIOQUINOL [Concomitant]
     Route: 061
  13. TRIAMCINOLONE [Concomitant]
  14. HUMIRA [Concomitant]
     Dates: start: 20110525
  15. ZANTAC [Concomitant]
  16. ZYRTEC [Concomitant]
  17. PRILOSEC [Concomitant]

REACTIONS (1)
  - CROHN'S DISEASE [None]
